FAERS Safety Report 10018045 (Version 1)
Quarter: 2014Q1

REPORT INFORMATION
  Report Type: Spontaneous
  Country: US (occurrence: US)
  Receive Date: 20140318
  Receipt Date: 20140318
  Transmission Date: 20141002
  Serious: No
  Sender: FDA-Public Use
  Company Number: US-BRISTOL-MYERS SQUIBB COMPANY-18896167

PATIENT
  Age: 62 Year
  Sex: Male

DRUGS (1)
  1. ERBITUX [Suspect]
     Dosage: RECEIVES ERBITUX ON THURSDAY, AND RECEIVED 7 THERAPIES TILL THE TIMEOF REPORT

REACTIONS (1)
  - Rash [Unknown]
